FAERS Safety Report 12376838 (Version 1)
Quarter: 2016Q2

REPORT INFORMATION
  Report Type: Spontaneous
  Country: US (occurrence: US)
  Receive Date: 20160517
  Receipt Date: 20160517
  Transmission Date: 20160815
  Serious: No
  Sender: FDA-Public Use
  Company Number: US-MALLINCKRODT-T201503313

PATIENT
  Age: 60 Year
  Sex: Female
  Weight: 57 kg

DRUGS (3)
  1. H.P. ACTHAR [Suspect]
     Active Substance: CORTICOTROPIN
     Dosage: 80 UNITS ONCE DAILY FOR 5 DAYS (1-2 INJECTIONS PER SERIES)
     Route: 065
     Dates: start: 20150801
  2. AUBAGIO [Concomitant]
     Active Substance: TERIFLUNOMIDE
  3. H.P. ACTHAR [Suspect]
     Active Substance: CORTICOTROPIN
     Indication: MULTIPLE SCLEROSIS RELAPSE
     Dosage: 80 UNITS ONCE DAILY FOR 5 DAYS (1-2 INJECTIONS PER SERIES)
     Route: 065
     Dates: start: 201402, end: 20150503

REACTIONS (4)
  - Intentional product misuse [Not Recovered/Not Resolved]
  - Cataract [Recovered/Resolved]
  - Arthropod bite [Not Recovered/Not Resolved]
  - Herpes zoster [Recovered/Resolved]

NARRATIVE: CASE EVENT DATE: 201402
